FAERS Safety Report 11637625 (Version 2)
Quarter: 2015Q4

REPORT INFORMATION
  Report Type: Spontaneous
  Country: MX (occurrence: MX)
  Receive Date: 20151016
  Receipt Date: 20151123
  Transmission Date: 20160304
  Serious: Yes (Hospitalization, Other)
  Sender: FDA-Public Use
  Company Number: MX-GLAXOSMITHKLINE-MX2015GSK147651

PATIENT
  Age: 55 Year
  Sex: Female

DRUGS (3)
  1. LAMOTRIGINE. [Suspect]
     Active Substance: LAMOTRIGINE
     Indication: PRODUCT USED FOR UNKNOWN INDICATION
  2. ENALAPRIL [Concomitant]
     Active Substance: ENALAPRIL
     Indication: HYPERTENSION
  3. BROMAZEPAM [Concomitant]
     Active Substance: BROMAZEPAM
     Indication: DEPRESSION

REACTIONS (18)
  - Hypersensitivity [Unknown]
  - Drug hypersensitivity [Unknown]
  - Cough [Unknown]
  - Erythema [Unknown]
  - Tonsillar hypertrophy [Unknown]
  - Nikolsky^s sign [Unknown]
  - Leukopenia [Unknown]
  - Toxic epidermal necrolysis [Unknown]
  - Tachycardia [Unknown]
  - Liver abscess [Unknown]
  - Odynophagia [Unknown]
  - Blister [Unknown]
  - Urticaria [Unknown]
  - Neutropenia [Unknown]
  - Pyrexia [Unknown]
  - Asthenia [Unknown]
  - Burning sensation [Unknown]
  - Conjunctivitis [Unknown]
